FAERS Safety Report 5137809-5 (Version None)
Quarter: 2006Q4

REPORT INFORMATION
  Report Type: 
  Country: None (occurrence: None)
  Receive Date: 20061030
  Receipt Date: 20060111
  Transmission Date: 20070319
  Serious: No
  Sender: FDA-Public Use
  Company Number: US-GLAXOSMITHKLINE-A0589749A

PATIENT
  Age: 76 Year
  Sex: Female
  Weight: 61.4 kg

DRUGS (6)
  1. ADVAIR HFA [Suspect]
     Indication: DRUG USE FOR UNKNOWN INDICATION
     Route: 055
     Dates: start: 20051207
  2. SEREVENT [Suspect]
     Indication: DRUG USE FOR UNKNOWN INDICATION
     Route: 055
     Dates: start: 20031230
  3. ALBUTEROL [Concomitant]
     Route: 055
  4. AMBIEN [Concomitant]
  5. RESTORIL [Concomitant]
  6. ACTONEL [Concomitant]

REACTIONS (1)
  - DIZZINESS [None]
